FAERS Safety Report 11143461 (Version 2)
Quarter: 2015Q2

REPORT INFORMATION
  Report Type: Spontaneous
  Country: AU (occurrence: AU)
  Receive Date: 20150528
  Receipt Date: 20150608
  Transmission Date: 20150821
  Serious: Yes (Hospitalization)
  Sender: FDA-Public Use
  Company Number: AU-ACTELION-A-CH2015-118213

PATIENT
  Age: 4 Year
  Sex: Female

DRUGS (4)
  1. TRACLEER [Suspect]
     Active Substance: BOSENTAN\BOSENTAN MONOHYDRATE
     Indication: PULMONARY ARTERIAL HYPERTENSION
     Dosage: 31.25 MG, BID
     Route: 048
     Dates: start: 20140109
  2. TRACLEER [Suspect]
     Active Substance: BOSENTAN\BOSENTAN MONOHYDRATE
     Dosage: 15.625 MG, BID
     Route: 048
     Dates: start: 20131218, end: 20140108
  3. SILDENAFIL. [Concomitant]
     Active Substance: SILDENAFIL
     Dosage: 6.25 MG, TID
     Dates: start: 20140429
  4. VELETRI [Suspect]
     Active Substance: EPOPROSTENOL
     Indication: PULMONARY ARTERIAL HYPERTENSION
     Dosage: 24 NG/KG, PER MIN
     Route: 041
     Dates: start: 20150420

REACTIONS (4)
  - Lobar pneumonia [Recovered/Resolved]
  - Device related sepsis [Recovered/Resolved]
  - Staphylococcus test positive [Recovered/Resolved]
  - Pseudomonas test positive [Recovered/Resolved]
